FAERS Safety Report 9319395 (Version 1)
Quarter: 2013Q2

REPORT INFORMATION
  Report Type: Spontaneous
  Country: US (occurrence: US)
  Receive Date: 20130530
  Receipt Date: 20130530
  Transmission Date: 20140414
  Serious: Yes (Other)
  Sender: FDA-Public Use
  Company Number: US-JNJFOC-20130515071

PATIENT
  Age: 89 Year
  Sex: Male

DRUGS (9)
  1. XARELTO [Suspect]
     Indication: CEREBROVASCULAR ACCIDENT PROPHYLAXIS
     Route: 048
     Dates: start: 201305, end: 201305
  2. XARELTO [Suspect]
     Indication: ATRIAL FIBRILLATION
     Route: 048
     Dates: start: 201305, end: 201305
  3. AMBIEN CR [Concomitant]
     Route: 048
  4. LEVOXYL [Concomitant]
     Route: 065
  5. BISOPROLOL [Concomitant]
     Route: 065
  6. PROTONIX [Concomitant]
     Route: 065
  7. TYLENOL [Concomitant]
     Route: 065
  8. LASIX [Concomitant]
     Route: 065
  9. NORCO [Concomitant]
     Route: 065

REACTIONS (1)
  - Cerebrovascular accident [Unknown]
